FAERS Safety Report 5396981-2 (Version None)
Quarter: 2007Q3

REPORT INFORMATION
  Report Type: 
  Country: None (occurrence: None)
  Receive Date: 20070725
  Receipt Date: 20070405
  Transmission Date: 20080115
  Serious: No
  Sender: FDA-Public Use
  Company Number: US-BAUSCH-2007BL001137

PATIENT
  Age: 24 Year
  Sex: Female

DRUGS (5)
  1. TROPICAMIDE [Suspect]
     Indication: OPHTHALMOLOGICAL EXAMINATION
     Route: 047
     Dates: start: 20070219, end: 20070219
  2. PHENYLEPHRINE HYDROCHLORIDE OPHTHALMIC SOLUTION USP 2.5% [Suspect]
     Indication: OPHTHALMOLOGICAL EXAMINATION
     Route: 047
     Dates: start: 20070219, end: 20070219
  3. ADDERALL XR 10 [Concomitant]
     Indication: DRUG USE FOR UNKNOWN INDICATION
  4. XOPENEX [Concomitant]
     Indication: DRUG USE FOR UNKNOWN INDICATION
  5. ADVAIR DISKUS 100/50 [Concomitant]
     Indication: DRUG USE FOR UNKNOWN INDICATION

REACTIONS (1)
  - DRUG EFFECT PROLONGED [None]
